FAERS Safety Report 4887311-0 (Version None)
Quarter: 2005Q4

REPORT INFORMATION
  Report Type: 
  Country: None (occurrence: None)
  Receive Date: 20051221
  Receipt Date: 20051026
  Transmission Date: 20060501
  Serious: No
  Sender: FDA-Public Use
  Company Number: US-YAMANOUCHI-YPA20050508

PATIENT
  Age: 78 Year
  Sex: Male

DRUGS (5)
  1. VESICARE [Suspect]
     Indication: POLLAKIURIA
     Dosage: 5 MG QD PO
     Route: 048
     Dates: start: 20050801, end: 20050927
  2. VESICARE [Suspect]
     Indication: POLLAKIURIA
     Dosage: 10 MG QD PO
     Route: 048
     Dates: start: 20050928
  3. ZOCOR [Concomitant]
  4. ASPIRIN [Concomitant]
  5. DAILY VITAMINS [Concomitant]

REACTIONS (2)
  - DRUG INEFFECTIVE [None]
  - HEADACHE [None]
